FAERS Safety Report 18973254 (Version 4)
Quarter: 2021Q3

REPORT INFORMATION
  Report Type: Report from Study
  Country: US (occurrence: US)
  Receive Date: 20210305
  Receipt Date: 20210712
  Transmission Date: 20211014
  Serious: Yes (Other)
  Sender: FDA-Public Use
  Company Number: NVSC2021US041493

PATIENT
  Sex: Male

DRUGS (1)
  1. KESIMPTA [Suspect]
     Active Substance: OFATUMUMAB
     Indication: RELAPSING-REMITTING MULTIPLE SCLEROSIS
     Dosage: UNK (SOLUTION, ONCE A MONTH)
     Route: 058
     Dates: start: 202102

REACTIONS (2)
  - Memory impairment [Unknown]
  - Multiple sclerosis relapse [Recovering/Resolving]
